FAERS Safety Report 9520905 (Version 2)
Quarter: 2013Q4

REPORT INFORMATION
  Report Type: Spontaneous
  Country: US (occurrence: US)
  Receive Date: 20130913
  Receipt Date: 20131213
  Transmission Date: 20140711
  Serious: Yes (Other)
  Sender: FDA-Public Use
  Company Number: US-PFIZER INC-2013260849

PATIENT
  Age: 56 Year
  Sex: Female
  Weight: 75.28 kg

DRUGS (11)
  1. XELJANZ [Suspect]
     Indication: RHEUMATOID ARTHRITIS
     Dosage: 5 MG, 2X/DAY
     Route: 048
     Dates: start: 20130509, end: 20130822
  2. CENTRUM [Concomitant]
     Dosage: UNK
  3. CALTRATE [Concomitant]
     Dosage: 600 UNKNOWN UNITS
  4. METHOTREXATE [Concomitant]
     Dosage: 2.5 MG, UNK
  5. FOLIC ACID [Concomitant]
     Dosage: 1 MG, UNK
  6. FISH OIL [Concomitant]
     Dosage: UNK
  7. VITAMIN D [Concomitant]
     Dosage: 1000 IU, UNK
  8. VITAMIN C [Concomitant]
     Dosage: 500 MG
  9. WELCHOL [Concomitant]
     Dosage: 625 MG, UNK
  10. TYLENOL [Concomitant]
     Dosage: 650 MG, UNK
  11. VITAMIN B12 [Concomitant]
     Dosage: 1000 UG, UNK

REACTIONS (11)
  - Rheumatoid arthritis [Unknown]
  - Local swelling [Unknown]
  - Joint swelling [Unknown]
  - Pain [Unknown]
  - Feeling abnormal [Unknown]
  - Migraine [Recovered/Resolved]
  - Chest pain [Recovered/Resolved]
  - Inflammation [Recovering/Resolving]
  - Blood pressure increased [Unknown]
  - Blood cholesterol increased [Unknown]
  - Hepatic enzyme abnormal [Unknown]
